FAERS Safety Report 4774454-5 (Version None)
Quarter: 2005Q3

REPORT INFORMATION
  Report Type: 
  Country: None (occurrence: None)
  Receive Date: 20050921
  Receipt Date: 20050825
  Transmission Date: 20060218
  Serious: Yes (Congenital Anomaly, Other)
  Sender: FDA-Public Use
  Company Number: US-BRISTOL-MYERS SQUIBB COMPANY-13091343

PATIENT
  Age: 1 Day
  Sex: Male
  Weight: 3 kg

DRUGS (3)
  1. VIDEX [Suspect]
     Dosage: ONGOING AT CONCEPTION
     Route: 064
     Dates: end: 20031205
  2. VIRACEPT [Suspect]
     Dosage: ONGOING AT CONCEPTION
     Route: 064
     Dates: end: 20031205
  3. RETROVIR [Suspect]
     Dosage: ONGOING AT CONCEPTION
     Route: 064
     Dates: end: 20031205

REACTIONS (4)
  - HYDRONEPHROSIS [None]
  - HYPONATRAEMIA [None]
  - HYPOSPADIAS [None]
  - PREGNANCY [None]
